FAERS Safety Report 8375225-3 (Version None)
Quarter: 2012Q2

REPORT INFORMATION
  Report Type: 
  Country: None (occurrence: None)
  Receive Date: 20120522
  Receipt Date: 20120509
  Transmission Date: 20120825
  Serious: Yes (Hospitalization)
  Sender: FDA-Public Use
  Company Number: FR-BRISTOL-MYERS SQUIBB COMPANY-16586034

PATIENT
  Age: 40 Year
  Sex: Male

DRUGS (3)
  1. CORTICOSTEROID [Concomitant]
  2. METHOTREXATE [Suspect]
     Route: 058
     Dates: start: 20101001, end: 20111101
  3. ORENCIA [Suspect]
     Dosage: NO OF COURSES:5
     Route: 042
     Dates: start: 20110728, end: 20111101

REACTIONS (1)
  - CYTOLYTIC HEPATITIS [None]
